FAERS Safety Report 5410441-1 (Version None)
Quarter: 2007Q3

REPORT INFORMATION
  Report Type: 
  Country: None (occurrence: None)
  Receive Date: 20070810
  Receipt Date: 20070523
  Transmission Date: 20080115
  Serious: No
  Sender: FDA-Public Use
  Company Number: A0622195A

PATIENT
  Sex: Female

DRUGS (4)
  1. PAROXETINE [Suspect]
     Indication: ANXIETY
     Route: 048
  2. PAXIL [Suspect]
     Indication: ANXIETY
     Dosage: 10MG PER DAY
     Route: 048
     Dates: start: 20050901, end: 20060101
  3. PAXIL CR [Suspect]
     Indication: ANXIETY
     Dosage: 12.5MG UNKNOWN
     Route: 048
     Dates: start: 20060101, end: 20060101
  4. NO CONCURRENT MEDICATION [Concomitant]

REACTIONS (7)
  - AGITATION [None]
  - ANXIETY [None]
  - DRUG INEFFECTIVE [None]
  - DRUG WITHDRAWAL SYNDROME [None]
  - MOOD ALTERED [None]
  - PHARMACEUTICAL PRODUCT COMPLAINT [None]
  - TREMOR [None]
